FAERS Safety Report 8990685 (Version 3)
Quarter: 2013Q1

REPORT INFORMATION
  Report Type: Spontaneous
  Country: US (occurrence: US)
  Receive Date: 20121228
  Receipt Date: 20130128
  Transmission Date: 20140127
  Serious: Yes (Other)
  Sender: FDA-Public Use
  Company Number: US-JNJFOC-20121208956

PATIENT
  Sex: Male
  Weight: 136.08 kg

DRUGS (10)
  1. XARELTO [Suspect]
     Indication: CEREBROVASCULAR ACCIDENT PROPHYLAXIS
     Route: 048
     Dates: start: 20120716, end: 20121212
  2. XARELTO [Suspect]
     Indication: ATRIAL FIBRILLATION
     Route: 048
     Dates: start: 20120716, end: 20121212
  3. AMIODARONE [Suspect]
     Indication: CARDIAC DISORDER
     Route: 048
     Dates: start: 201206, end: 20121017
  4. NOVOLOG 70-30 [Concomitant]
     Indication: DIABETES MELLITUS
     Route: 065
     Dates: start: 20091201
  5. AMLODIPINE [Concomitant]
     Indication: PRODUCT USED FOR UNKNOWN INDICATION
     Route: 065
  6. BENAZEPRIL [Concomitant]
     Indication: PRODUCT USED FOR UNKNOWN INDICATION
     Route: 065
  7. ALEVE [Concomitant]
     Indication: PAIN
     Route: 065
  8. AZUR COMP [Concomitant]
     Indication: CARDIAC DISORDER
     Dosage: 5/40 MG
     Route: 065
  9. TYLENOL [Concomitant]
     Indication: ARTHRITIS
     Route: 065
     Dates: start: 200506, end: 20121110
  10. PRILOSEC [Concomitant]
     Indication: DYSPEPSIA
     Route: 065
     Dates: start: 200611, end: 20121110

REACTIONS (4)
  - Post procedural haemorrhage [Not Recovered/Not Resolved]
  - Pain [Unknown]
  - Asthenia [Not Recovered/Not Resolved]
  - Paraesthesia [Not Recovered/Not Resolved]
